FAERS Safety Report 5477201-7 (Version None)
Quarter: 2007Q4

REPORT INFORMATION
  Report Type: 
  Country: None (occurrence: None)
  Receive Date: 20071004
  Receipt Date: 20071002
  Transmission Date: 20080405
  Serious: Yes (Life-Threatening, Other)
  Sender: FDA-Public Use
  Company Number: B0486687A

PATIENT
  Age: 76 Year
  Sex: Male

DRUGS (3)
  1. TOPOTECAN [Suspect]
     Dosage: 2MG PER DAY
     Route: 042
     Dates: start: 20070821, end: 20070825
  2. NEUPOGEN [Concomitant]
     Route: 065
  3. ZOFRAN [Concomitant]
     Dosage: 4MG PER DAY
     Route: 042
     Dates: start: 20070821, end: 20070825

REACTIONS (6)
  - HAEMOGLOBIN DECREASED [None]
  - NEUTROPHIL COUNT DECREASED [None]
  - NEUTROPHIL COUNT INCREASED [None]
  - PLATELET COUNT DECREASED [None]
  - RED BLOOD CELL COUNT DECREASED [None]
  - WHITE BLOOD CELL COUNT INCREASED [None]
